FAERS Safety Report 18326843 (Version 3)
Quarter: 2020Q4

REPORT INFORMATION
  Report Type: Spontaneous
  Country: IT (occurrence: IT)
  Receive Date: 20200929
  Receipt Date: 20201030
  Transmission Date: 20210113
  Serious: Yes (Hospitalization)
  Sender: FDA-Public Use
  Company Number: IT-JNJFOC-20200929224

PATIENT
  Age: 52 Year
  Sex: Female
  Weight: 53 kg

DRUGS (5)
  1. REMICADE [Suspect]
     Active Substance: INFLIXIMAB
     Indication: COLITIS ULCERATIVE
     Dosage: THIRD CYCLE
     Route: 042
     Dates: start: 20200710
  2. REMSIMA [Suspect]
     Active Substance: INFLIXIMAB
     Indication: COLITIS ULCERATIVE
     Dosage: FIRST AND SECOND CYCLE
     Route: 042
  3. REMSIMA [Suspect]
     Active Substance: INFLIXIMAB
     Dosage: THIRD CYCLE
     Route: 042
     Dates: start: 20200710
  4. WATER FOR INJECTION [Suspect]
     Active Substance: WATER
     Dosage: THIRD CYCLE
     Route: 042
     Dates: start: 20200710
  5. WATER FOR INJECTION [Suspect]
     Active Substance: WATER
     Indication: MEDICATION DILUTION
     Dosage: FIRST AND SECOND CYCLES
     Route: 065

REACTIONS (2)
  - Interstitial lung disease [Not Recovered/Not Resolved]
  - Respiratory failure [Not Recovered/Not Resolved]

NARRATIVE: CASE EVENT DATE: 20200714
